FAERS Safety Report 4795012-2 (Version None)
Quarter: 2005Q4

REPORT INFORMATION
  Report Type: 
  Country: None (occurrence: None)
  Receive Date: 20051012
  Receipt Date: 20050919
  Transmission Date: 20060501
  Serious: Yes (Hospitalization)
  Sender: FDA-Public Use
  Company Number: PHHO2005GB14783

PATIENT
  Age: 26 Year
  Sex: Female

DRUGS (4)
  1. SYNTOCINON [Suspect]
     Dosage: UNK, UNK
     Dates: start: 20050912
  2. MISOPROSTOL [Suspect]
     Dosage: 50 UG
     Route: 067
     Dates: start: 20050911, end: 20050911
  3. MISOPROSTOL [Suspect]
     Dosage: 25 UG
     Route: 067
     Dates: start: 20050911, end: 20050911
  4. MISOPROSTOL [Suspect]
     Dosage: 25 UG
     Route: 067
     Dates: start: 20050911, end: 20050911

REACTIONS (4)
  - CAESAREAN SECTION [None]
  - COMPLICATION OF PREGNANCY [None]
  - DRUG EXPOSURE DURING PREGNANCY [None]
  - FAILED INDUCTION OF LABOUR [None]
